FAERS Safety Report 15412722 (Version 1)
Quarter: 2018Q3

REPORT INFORMATION
  Report Type: Spontaneous
  Country: US (occurrence: US)
  Receive Date: 20180921
  Receipt Date: 20180921
  Transmission Date: 20181010
  Serious: No
  Sender: FDA-Public Use
  Company Number: US-TEVA-2018-US-955157

PATIENT
  Age: 61 Year
  Sex: Female

DRUGS (3)
  1. DESIPRAMINE [Suspect]
     Active Substance: DESIPRAMINE
     Indication: MAJOR DEPRESSION
     Route: 065
  2. DESIPRAMINE [Suspect]
     Active Substance: DESIPRAMINE
     Indication: AGORAPHOBIA
  3. DESIPRAMINE [Suspect]
     Active Substance: DESIPRAMINE
     Indication: PANIC ATTACK

REACTIONS (1)
  - Dyspepsia [Unknown]
